FAERS Safety Report 16830088 (Version 2)
Quarter: 2019Q4

REPORT INFORMATION
  Report Type: Spontaneous
  Country: US (occurrence: US)
  Receive Date: 20190919
  Receipt Date: 20191001
  Transmission Date: 20200122
  Serious: No
  Sender: FDA-Public Use
  Company Number: US-SHIRE-US201930552

PATIENT
  Age: 39 Year
  Sex: Female

DRUGS (2)
  1. NATPARA (PARATHYROID HORMONE) [Suspect]
     Active Substance: PARATHYROID HORMONE
     Indication: PRODUCT USED FOR UNKNOWN INDICATION
     Dosage: 75 MICROGRAM, 1X/DAY:QD
     Route: 065
     Dates: start: 201710
  2. NATPARA (PARATHYROID HORMONE) [Suspect]
     Active Substance: PARATHYROID HORMONE
     Dosage: 75 UNK UNITS
     Route: 058
     Dates: start: 20171106

REACTIONS (3)
  - Migraine [Not Recovered/Not Resolved]
  - Pain in jaw [Recovered/Resolved]
  - Calcium deficiency [Unknown]

NARRATIVE: CASE EVENT DATE: 20190912
